FAERS Safety Report 13184741 (Version 10)
Quarter: 2018Q3

REPORT INFORMATION
  Report Type: Report from Study
  Country: GB (occurrence: GB)
  Receive Date: 20170203
  Receipt Date: 20180925
  Transmission Date: 20181010
  Serious: Yes (Other)
  Sender: FDA-Public Use
  Company Number: GB-JNJFOC-20170104741

PATIENT
  Sex: Female

DRUGS (2)
  1. METHOTREXATE. [Concomitant]
     Active Substance: METHOTREXATE
     Route: 065
  2. SIMPONI [Suspect]
     Active Substance: GOLIMUMAB
     Indication: PRODUCT USED FOR UNKNOWN INDICATION
     Route: 058

REACTIONS (10)
  - Feeling of body temperature change [Unknown]
  - Device malfunction [Unknown]
  - Influenza [Unknown]
  - Loss of personal independence in daily activities [Unknown]
  - Limb discomfort [Unknown]
  - Arthropathy [Unknown]
  - Osteoarthritis [Unknown]
  - Feeling hot [Unknown]
  - Drug ineffective [Unknown]
  - Lower respiratory tract infection [Unknown]

NARRATIVE: CASE EVENT DATE: 2017
